FAERS Safety Report 17511101 (Version 1)
Quarter: 2020Q1

REPORT INFORMATION
  Report Type: Spontaneous
  Country: US (occurrence: US)
  Receive Date: 20200227
  Receipt Date: 20200227
  Transmission Date: 20200409
  Serious: No
  Sender: FDA-Public Use
  Company Number: None

PATIENT
  Age: 46 Year
  Sex: Male

DRUGS (1)
  1. VITRAKVI [Suspect]
     Active Substance: LAROTRECTINIB
     Indication: SALIVARY GLAND CANCER
     Route: 048
     Dates: start: 20190826

REACTIONS (2)
  - Neck pain [None]
  - Headache [None]

NARRATIVE: CASE EVENT DATE: 20190226
